FAERS Safety Report 8573796 (Version 10)
Quarter: 2015Q2

REPORT INFORMATION
  Report Type: Report from Study
  Country: BR (occurrence: BR)
  Receive Date: 20120522
  Receipt Date: 20150604
  Transmission Date: 20150821
  Serious: Yes (Hospitalization, Other)
  Sender: FDA-Public Use
  Company Number: BR-ROCHE-795643

PATIENT
  Age: 49 Year
  Sex: Female
  Weight: 63.5 kg

DRUGS (16)
  1. METHOTREXATE [Concomitant]
     Active Substance: METHOTREXATE
     Indication: RHEUMATOID ARTHRITIS
     Route: 065
  2. FLUOXETINE HYDROCHLORIDE. [Concomitant]
     Active Substance: FLUOXETINE HYDROCHLORIDE
     Indication: ANXIETY
  3. MABTHERA [Suspect]
     Active Substance: RITUXIMAB
     Dosage: 4 TH CYCLE
     Route: 042
     Dates: start: 20120417, end: 20120504
  4. SIMVASTATIN. [Concomitant]
     Active Substance: SIMVASTATIN
     Dosage: DAILY
     Route: 065
  5. CYMBALTA [Concomitant]
     Active Substance: DULOXETINE HYDROCHLORIDE
  6. OMEPRAZOLE. [Concomitant]
     Active Substance: OMEPRAZOLE
     Route: 065
  7. CEBRALAT [Concomitant]
     Active Substance: CILOSTAZOL
     Indication: PRODUCT USED FOR UNKNOWN INDICATION
  8. FOLIC ACID. [Concomitant]
     Active Substance: FOLIC ACID
     Indication: RHEUMATOID ARTHRITIS
     Dosage: DAILY
     Route: 065
  9. MABTHERA [Suspect]
     Active Substance: RITUXIMAB
     Route: 042
  10. ATENOLOL. [Concomitant]
     Active Substance: ATENOLOL
     Indication: HYPERTENSION
     Route: 065
  11. ENALAPRIL [Concomitant]
     Active Substance: ENALAPRIL
     Indication: HYPERTENSION
     Route: 065
  12. MABTHERA [Suspect]
     Active Substance: RITUXIMAB
     Dosage: 3 RD CYCLE
     Route: 042
  13. MABTHERA [Suspect]
     Active Substance: RITUXIMAB
     Route: 042
  14. MABTHERA [Suspect]
     Active Substance: RITUXIMAB
     Indication: RHEUMATOID ARTHRITIS
     Route: 042
     Dates: start: 20080301, end: 201304
  15. KETOPROFEN. [Concomitant]
     Active Substance: KETOPROFEN
  16. AMITRIPTYLINE [Concomitant]
     Active Substance: AMITRIPTYLINE
     Route: 065

REACTIONS (51)
  - Tendon disorder [Not Recovered/Not Resolved]
  - Tooth disorder [Unknown]
  - Sensory disturbance [Unknown]
  - Peripheral swelling [Unknown]
  - Hypertension [Unknown]
  - Back disorder [Unknown]
  - Hepatic neoplasm [Not Recovered/Not Resolved]
  - Pain [Not Recovered/Not Resolved]
  - Fall [Unknown]
  - Head injury [Recovered/Resolved with Sequelae]
  - Hypoaesthesia [Unknown]
  - Hepatic neoplasm [Unknown]
  - Pulmonary oedema [Recovered/Resolved]
  - Gait disturbance [Not Recovered/Not Resolved]
  - Vomiting [Unknown]
  - Blood cholesterol increased [Not Recovered/Not Resolved]
  - Fatigue [Not Recovered/Not Resolved]
  - Blood cholesterol abnormal [Unknown]
  - Malaise [Unknown]
  - Tendonitis [Not Recovered/Not Resolved]
  - Activities of daily living impaired [Not Recovered/Not Resolved]
  - Spinal cord compression [Not Recovered/Not Resolved]
  - Central nervous system lesion [Unknown]
  - Pneumonia [Unknown]
  - Spinal disorder [Recovering/Resolving]
  - Pain in extremity [Not Recovered/Not Resolved]
  - Muscle spasms [Unknown]
  - Renal disorder [Unknown]
  - Blood pressure fluctuation [Not Recovered/Not Resolved]
  - Tremor [Unknown]
  - Lung disorder [Not Recovered/Not Resolved]
  - Infusion related reaction [Recovered/Resolved]
  - Tooth fracture [Recovering/Resolving]
  - Headache [Unknown]
  - Fall [Recovered/Resolved]
  - Lung infection [Unknown]
  - Chills [Unknown]
  - Tachycardia [Unknown]
  - Pulmonary hypertension [Unknown]
  - Spinal disorder [Unknown]
  - Dyspnoea [Recovered/Resolved]
  - Ear injury [Unknown]
  - Diarrhoea [Unknown]
  - Deafness [Not Recovered/Not Resolved]
  - Headache [Not Recovered/Not Resolved]
  - Migraine [Unknown]
  - Brain oedema [Not Recovered/Not Resolved]
  - Head injury [Unknown]
  - Urinary tract infection [Unknown]
  - Erythema [Unknown]
  - Dizziness [Unknown]

NARRATIVE: CASE EVENT DATE: 2011
